FAERS Safety Report 19560889 (Version 4)
Quarter: 2021Q4

REPORT INFORMATION
  Report Type: Spontaneous
  Country: BE (occurrence: BE)
  Receive Date: 20210716
  Receipt Date: 20211228
  Transmission Date: 20220303
  Serious: Yes (Other)
  Sender: FDA-Public Use
  Company Number: BE-GLAXOSMITHKLINE-BE2021EME107756

PATIENT
  Age: 77 Year
  Sex: Male
  Weight: 58 kg

DRUGS (23)
  1. NUCALA [Suspect]
     Active Substance: MEPOLIZUMAB
     Indication: Asthma
     Dosage: UNK
     Dates: start: 2019
  2. NUCALA [Suspect]
     Active Substance: MEPOLIZUMAB
     Indication: Product used for unknown indication
     Dosage: 100 MG, Z EVERY 4 WEEKS
     Route: 058
     Dates: start: 20171013
  3. AMOXICILLIN [Suspect]
     Active Substance: AMOXICILLIN
     Indication: Product used for unknown indication
     Dosage: UNK
  4. FLUTICASONE PROPIONATE [Suspect]
     Active Substance: FLUTICASONE PROPIONATE
     Indication: Product used for unknown indication
     Dosage: 2 PUFF(S), BID 250 UG
     Dates: start: 201707
  5. AUGMENTIN [Suspect]
     Active Substance: AMOXICILLIN\CLAVULANATE POTASSIUM
     Indication: Product used for unknown indication
     Dosage: UNK
  6. FLUTICASONE FUROATE\VILANTEROL TRIFENATATE [Suspect]
     Active Substance: FLUTICASONE FUROATE\VILANTEROL TRIFENATATE
     Indication: Product used for unknown indication
     Dosage: 1 PUFF(S), QD 184-22 ?G/ACTUATION, 30 ACTUATION INHALER),
  7. XARELTO [Suspect]
     Active Substance: RIVAROXABAN
     Indication: Pulmonary embolism
     Dosage: 15 MG, QD
  8. MEDROL [Suspect]
     Active Substance: METHYLPREDNISOLONE
     Indication: Asthma
     Dosage: UNK UNK, QD, 4 MG/L
     Dates: start: 202010
  9. MEDROL [Suspect]
     Active Substance: METHYLPREDNISOLONE
     Indication: Sinusitis
     Dosage: UNK, 7 MG/L
  10. MEDROL [Suspect]
     Active Substance: METHYLPREDNISOLONE
     Dosage: 2 MG, QD
  11. AZITHROMYCIN [Suspect]
     Active Substance: AZITHROMYCIN
     Indication: Product used for unknown indication
     Dosage: 500 MG, Z3/WEEK
  12. MOMETASONE [Suspect]
     Active Substance: MOMETASONE
     Indication: Product used for unknown indication
     Dosage: 2 PUFF(S), BID
  13. FENOTEROL HYDROBROMIDE [Suspect]
     Active Substance: FENOTEROL HYDROBROMIDE
     Indication: Dyspnoea
     Dosage: 2 PUFF(S), BID
  14. SPIRIVA [Suspect]
     Active Substance: TIOTROPIUM BROMIDE MONOHYDRATE
     Indication: Product used for unknown indication
     Dosage: 2 PUFF(S), QD
  15. AZITHROMYCIN [Suspect]
     Active Substance: AZITHROMYCIN
     Indication: Product used for unknown indication
     Dosage: UNK
  16. ASPIRIN [Suspect]
     Active Substance: ASPIRIN
     Indication: Product used for unknown indication
     Dosage: UNK
  17. NADROPARIN CALCIUM [Suspect]
     Active Substance: NADROPARIN CALCIUM
     Indication: Product used for unknown indication
     Dosage: UNK
  18. CHOLECALCIFEROL [Suspect]
     Active Substance: CHOLECALCIFEROL
     Indication: Product used for unknown indication
     Dosage: UNK
  19. AMOXICILLIN\CLAVULANATE POTASSIUM [Suspect]
     Active Substance: AMOXICILLIN\CLAVULANATE POTASSIUM
     Indication: Product used for unknown indication
     Dosage: 875 MG, QD 875 MG, Z 3 DAYS
  20. INFLUENZA VIRUS VACCINE [Suspect]
     Active Substance: INFLUENZA VIRUS VACCINE
     Indication: Product used for unknown indication
     Dosage: UNK
  21. PNEUMOCOCCAL VACCINE POLYVALENT NOS [Suspect]
     Active Substance: PNEUMOCOCCAL VACCINE POLYVALENT
     Indication: Pneumococcal infection
     Dosage: UNK
  22. ACETYLCYSTEINE [Suspect]
     Active Substance: ACETYLCYSTEINE
     Indication: Sputum retention
     Dosage: 600 MG
  23. MONTELUKAST SODIUM [Suspect]
     Active Substance: MONTELUKAST SODIUM
     Indication: Product used for unknown indication
     Dosage: 10 MG, QD

REACTIONS (18)
  - Bronchiectasis [Unknown]
  - Bacterial infection [Unknown]
  - Condition aggravated [Unknown]
  - Neutrophil count abnormal [Unknown]
  - Pulmonary embolism [Unknown]
  - Asthma [Unknown]
  - Sputum purulent [Unknown]
  - Staphylococcal infection [Unknown]
  - Drug ineffective [Unknown]
  - Thrombosis [Unknown]
  - Haematoma [Unknown]
  - Cough [Unknown]
  - Dyspnoea [Unknown]
  - Productive cough [Unknown]
  - Upper-airway cough syndrome [Unknown]
  - Chronic sinusitis [Unknown]
  - Pain [Unknown]
  - Renal colic [Unknown]

NARRATIVE: CASE EVENT DATE: 20170501
